FAERS Safety Report 25331467 (Version 2)
Quarter: 2025Q2

REPORT INFORMATION
  Report Type: Spontaneous
  Country: TR (occurrence: TR)
  Receive Date: 20250519
  Receipt Date: 20250527
  Transmission Date: 20250717
  Serious: Yes (Death, Hospitalization, Other)
  Sender: ABBVIE
  Company Number: TR-ABBVIE-6281365

PATIENT
  Age: 73 Year
  Sex: Female

DRUGS (1)
  1. RINVOQ [Suspect]
     Active Substance: UPADACITINIB
     Indication: Crohn^s disease
     Dosage: 1X2
     Route: 048
     Dates: start: 202412, end: 202505

REACTIONS (6)
  - Blood pressure decreased [Fatal]
  - Open globe injury [Unknown]
  - Ophthalmic herpes simplex [Unknown]
  - Sepsis [Fatal]
  - Infection [Fatal]
  - General physical health deterioration [Fatal]
